FAERS Safety Report 5587800-X (Version None)
Quarter: 2007Q4

REPORT INFORMATION
  Report Type: 
  Country: None (occurrence: None)
  Receive Date: 20071211
  Receipt Date: 20071108
  Transmission Date: 20080405
  Serious: No
  Sender: FDA-Public Use
  Company Number: 002#1#2007-00315

PATIENT

DRUGS (1)
  1. NEUPRO [Suspect]

REACTIONS (1)
  - PAIN IN EXTREMITY [None]
